FAERS Safety Report 21581703 (Version 1)
Quarter: 2022Q4

REPORT INFORMATION
  Report Type: Spontaneous
  Country: DE (occurrence: DE)
  Receive Date: 20221111
  Receipt Date: 20221111
  Transmission Date: 20230113
  Serious: Yes (Other)
  Sender: FDA-Public Use
  Company Number: DE-ALKEM LABORATORIES LIMITED-DE-ALKEM-2022-12387

PATIENT
  Sex: Female

DRUGS (1)
  1. IBUPROFEN [Suspect]
     Active Substance: IBUPROFEN
     Indication: Accidental exposure to product
     Dosage: 400 MILLIGRAM, QD, PER DAY
     Route: 065

REACTIONS (2)
  - Oligohydramnios [Unknown]
  - Exposure during pregnancy [Unknown]
